FAERS Safety Report 5068759-0 (Version None)
Quarter: 2006Q3

REPORT INFORMATION
  Report Type: 
  Country: None (occurrence: None)
  Receive Date: 20060802
  Receipt Date: 20060320
  Transmission Date: 20061208
  Serious: No
  Sender: FDA-Public Use
  Company Number: US-BRISTOL-MYERS SQUIBB COMPANY-13320437

PATIENT
  Age: 70 Year
  Sex: Female
  Weight: 107 kg

DRUGS (2)
  1. TEQUIN [Suspect]
     Dates: start: 20051101
  2. COUMADIN [Suspect]
     Indication: PULMONARY EMBOLISM
     Dates: start: 20051101

REACTIONS (3)
  - RASH [None]
  - RASH PRURITIC [None]
  - VAGINAL BURNING SENSATION [None]
